FAERS Safety Report 8492203-4 (Version None)
Quarter: 2012Q3

REPORT INFORMATION
  Report Type: 
  Country: None (occurrence: None)
  Receive Date: 20120706
  Receipt Date: 20120629
  Transmission Date: 20120928
  Serious: Yes (Hospitalization)
  Sender: FDA-Public Use
  Company Number: US-BAYER-2012-031619

PATIENT
  Age: 18 Year
  Sex: Female
  Weight: 56.689 kg

DRUGS (12)
  1. YASMIN [Suspect]
     Indication: PREMENSTRUAL SYNDROME
  2. LORTAB [Concomitant]
     Indication: CHEST PAIN
  3. LEXAPRO [Concomitant]
     Indication: ANXIETY
  4. TRAZODONE HCL [Concomitant]
     Indication: ANXIETY
  5. LEXAPRO [Concomitant]
     Indication: DEPRESSION
     Dosage: 20 MG, QD
     Route: 048
  6. ALBUTEROL [Concomitant]
     Dosage: UNK UNK, PRN
     Route: 045
  7. FLOVENT [Concomitant]
     Dosage: 110 MCG
  8. MIDOL [Concomitant]
     Indication: PREMENSTRUAL SYNDROME
     Dosage: TWICE MONTHLY AS NEEDED
  9. YASMIN [Suspect]
     Indication: ACNE
     Dosage: UNK
     Dates: start: 20040101, end: 20040701
  10. FLONASE [Concomitant]
     Dosage: UNK UNK, PRN
  11. TRAZODONE HCL [Concomitant]
     Indication: DEPRESSION
     Dosage: 25 MG, EVERY HOUR OF SLEEP
     Route: 048
  12. YASMIN [Suspect]
     Indication: DYSMENORRHOEA

REACTIONS (3)
  - DEPRESSION [None]
  - PULMONARY EMBOLISM [None]
  - PAIN [None]
